FAERS Safety Report 9189905 (Version 1)
Quarter: 2013Q1

REPORT INFORMATION
  Report Type: Spontaneous
  Country: GB (occurrence: None)
  Receive Date: 20130322
  Receipt Date: 20130322
  Transmission Date: 20140127
  Serious: Yes (Life-Threatening, Other)
  Sender: FDA-Public Use
  Company Number: SYM-2013-01760

PATIENT
  Age: 24 Year
  Sex: Female

DRUGS (3)
  1. METRONIDAZOLE [Suspect]
     Indication: VAGINITIS BACTERIAL
     Route: 048
     Dates: start: 20130223, end: 20130225
  2. CANESTEN (CLOTRIMAZOLE) (CLOTRIMAZOLE) [Concomitant]
  3. CEFALEXIN (CEFALEXIN) (CEFALEXIN) [Concomitant]

REACTIONS (2)
  - Clonic convulsion [None]
  - Convulsion [None]
